FAERS Safety Report 7322498 (Version 22)
Quarter: 2013Q2

REPORT INFORMATION
  Report Type: Spontaneous
  Country: CA (occurrence: CA)
  Receive Date: 20100317
  Receipt Date: 20130502
  Transmission Date: 20140414
  Serious: Yes (Other)
  Sender: FDA-Public Use
  Company Number: PHHY2009CA19642

PATIENT
  Age: 59 Year
  Sex: Male

DRUGS (5)
  1. SANDOSTATIN LAR [Suspect]
     Indication: ACROMEGALY
     Dosage: 10 MG, QMO
     Route: 030
     Dates: start: 20071030
  2. SANDOSTATIN LAR [Suspect]
     Dosage: 10 MG, EVERY 4 WEEKS
     Route: 030
  3. SANDOSTATIN LAR [Suspect]
     Dosage: 10 MG, QMO
     Route: 030
  4. SANDOSTATIN LAR [Suspect]
     Dosage: 10 MG, EVERY 4 WEEKS
     Route: 030
  5. SANDOSTATIN LAR [Suspect]
     Dosage: 20 MG, ONCE A MONTH
     Route: 030

REACTIONS (13)
  - Glycosylated haemoglobin increased [Unknown]
  - Hip fracture [Unknown]
  - Fall [Unknown]
  - Gastroenteritis viral [Unknown]
  - Nausea [Unknown]
  - Decreased appetite [Unknown]
  - Diarrhoea [Unknown]
  - Postoperative wound complication [Unknown]
  - Pain [Unknown]
  - Blood glucose increased [Unknown]
  - Blood growth hormone increased [Unknown]
  - Insomnia [Unknown]
  - Headache [Not Recovered/Not Resolved]
